FAERS Safety Report 9682941 (Version 1)
Quarter: 2013Q4

REPORT INFORMATION
  Report Type: Report from Study
  Country: US (occurrence: US)
  Receive Date: 20131112
  Receipt Date: 20131112
  Transmission Date: 20140711
  Serious: Yes (Death)
  Sender: FDA-Public Use
  Company Number: US-ROCHE-1299172

PATIENT
  Sex: Male

DRUGS (1)
  1. BEVACIZUMAB [Suspect]
     Indication: GLIOBLASTOMA
     Route: 065
     Dates: start: 20121129, end: 20130503

REACTIONS (2)
  - Metastatic neoplasm [Fatal]
  - Treatment failure [Unknown]
